FAERS Safety Report 18335572 (Version 3)
Quarter: 2021Q4

REPORT INFORMATION
  Report Type: Report from Study
  Country: None (occurrence: DE)
  Receive Date: 20201001
  Receipt Date: 20211010
  Transmission Date: 20220303
  Serious: Yes (Hospitalization, Other)
  Sender: FDA-Public Use
  Company Number: DE-ABBVIE-20K-062-3591052-00

PATIENT
  Age: 61 Year
  Sex: Male
  Weight: 94 kg

DRUGS (11)
  1. RINVOQ [Suspect]
     Active Substance: UPADACITINIB
     Indication: Rheumatoid arthritis
     Route: 048
     Dates: start: 20200706, end: 20200919
  2. RINVOQ [Suspect]
     Active Substance: UPADACITINIB
     Route: 048
     Dates: start: 20200928
  3. MORPHINE [Suspect]
     Active Substance: MORPHINE
     Indication: Product used for unknown indication
     Route: 065
  4. SULFASALAZINE [Concomitant]
     Active Substance: SULFASALAZINE
     Indication: Rheumatoid arthritis
     Route: 048
     Dates: start: 20200812
  5. MORPHINE SULFATE [Concomitant]
     Active Substance: MORPHINE SULFATE
     Indication: Pain
     Route: 048
     Dates: start: 2012
  6. MORPHINE SULFATE [Concomitant]
     Active Substance: MORPHINE SULFATE
     Route: 048
  7. LYRICA [Concomitant]
     Active Substance: PREGABALIN
     Indication: Complex regional pain syndrome
     Route: 048
     Dates: start: 2013
  8. QUETIAPINE [Concomitant]
     Active Substance: QUETIAPINE
     Indication: Depression
     Route: 048
     Dates: start: 2018
  9. QUETIAPINE [Concomitant]
     Active Substance: QUETIAPINE
     Indication: Anxiety disorder
     Route: 048
     Dates: start: 2018
  10. AMLODIPINE [Concomitant]
     Active Substance: AMLODIPINE BESYLATE
     Indication: Hypertension
     Route: 048
     Dates: start: 2011
  11. TORSEMIDE [Concomitant]
     Active Substance: TORSEMIDE
     Indication: Product used for unknown indication
     Route: 048

REACTIONS (3)
  - Diverticulitis [Recovered/Resolved]
  - Postoperative adhesion [Unknown]
  - Gastrointestinal hypomotility [Unknown]

NARRATIVE: CASE EVENT DATE: 20200101
